FAERS Safety Report 4947070-X (Version None)
Quarter: 2006Q1

REPORT INFORMATION
  Report Type: 
  Country: None (occurrence: None)
  Receive Date: 20060131
  Receipt Date: 20060102
  Transmission Date: 20060701
  Serious: No
  Sender: FDA-Public Use
  Company Number: 200511456US

PATIENT
  Sex: Male

DRUGS (2)
  1. KETEK [Suspect]
     Indication: EAR INFECTION
  2. KETEK [Suspect]
     Indication: SINUSITIS

REACTIONS (1)
  - VISION BLURRED [None]
